FAERS Safety Report 14259948 (Version 1)
Quarter: 2017Q4

REPORT INFORMATION
  Report Type: Spontaneous
  Country: US (occurrence: US)
  Receive Date: 20171207
  Receipt Date: 20171207
  Transmission Date: 20180321
  Serious: No
  Sender: FDA-Public Use
  Company Number: US-VIFOR (INTERNATIONAL) INC.-VIT-2016-08058

PATIENT
  Sex: Male

DRUGS (28)
  1. TRADJENTA [Concomitant]
     Active Substance: LINAGLIPTIN
  2. ESCITALOPRAM [Concomitant]
     Active Substance: ESCITALOPRAM OXALATE
  3. AMLODIPINE [Concomitant]
     Active Substance: AMLODIPINE BESYLATE
  4. PRAVASTATIN. [Concomitant]
     Active Substance: PRAVASTATIN
  5. SODIUM BICARBONATE. [Concomitant]
     Active Substance: SODIUM BICARBONATE
  6. DOCUSATE SODIUM. [Concomitant]
     Active Substance: DOCUSATE SODIUM
  7. TRAMADOL. [Concomitant]
     Active Substance: TRAMADOL
  8. NOVOLOG [Concomitant]
     Active Substance: INSULIN ASPART
  9. SODIUM BICARBONATE. [Concomitant]
     Active Substance: SODIUM BICARBONATE
  10. VELTASSA [Suspect]
     Active Substance: PATIROMER
     Route: 048
     Dates: start: 20170404
  11. DULOXETINE. [Concomitant]
     Active Substance: DULOXETINE
  12. GLIPIZIDE. [Concomitant]
     Active Substance: GLIPIZIDE
  13. HYDRALAZINE [Concomitant]
     Active Substance: HYDRALAZINE HYDROCHLORIDE
  14. LANTUS [Concomitant]
     Active Substance: INSULIN GLARGINE
  15. ALPRAZOLAM. [Concomitant]
     Active Substance: ALPRAZOLAM
  16. ACETYLSALICYLIC ACID [Concomitant]
     Active Substance: ASPIRIN
  17. VITAMIN D [Concomitant]
     Active Substance: CHOLECALCIFEROL
  18. SKELAXIN [Concomitant]
     Active Substance: METAXALONE
  19. NIFEDIPINE. [Concomitant]
     Active Substance: NIFEDIPINE
  20. ALLOPURINOL. [Concomitant]
     Active Substance: ALLOPURINOL
  21. CARVEDILOL. [Concomitant]
     Active Substance: CARVEDILOL
  22. HYDROCODONE [Concomitant]
     Active Substance: HYDROCODONE
  23. HUMALOG [Concomitant]
     Active Substance: INSULIN LISPRO
  24. GABAPENTIN. [Concomitant]
     Active Substance: GABAPENTIN
  25. GEMFIBROZIL. [Concomitant]
     Active Substance: GEMFIBROZIL
  26. PERCOCET [Concomitant]
     Active Substance: ACETAMINOPHEN\OXYCODONE HYDROCHLORIDE
  27. VELTASSA [Suspect]
     Active Substance: PATIROMER
     Indication: HYPERKALAEMIA
     Route: 048
  28. ATORVASTATIN [Concomitant]
     Active Substance: ATORVASTATIN

REACTIONS (1)
  - Drug dose omission [Unknown]

NARRATIVE: CASE EVENT DATE: 2017
